FAERS Safety Report 10170077 (Version 1)
Quarter: 2014Q2

REPORT INFORMATION
  Report Type: Spontaneous
  Country: GB (occurrence: GB)
  Receive Date: 20140513
  Receipt Date: 20140513
  Transmission Date: 20141212
  Serious: Yes (Death, Hospitalization)
  Sender: FDA-Public Use
  Company Number: GB-BANPHARM-20142660

PATIENT
  Age: 72 Year
  Sex: Female

DRUGS (15)
  1. IBUPROFEN UNKNOWN PRODUCT [Suspect]
     Indication: PAIN
     Dosage: 200 MG, TID
     Route: 048
     Dates: start: 20140408, end: 20140415
  2. PAMIDRONATE DISODIUM [Suspect]
     Indication: HYPERCALCAEMIA OF MALIGNANCY
     Dates: start: 20140409, end: 20140409
  3. CO-AMOXICLAV [Concomitant]
     Dates: start: 20140410
  4. CYCLIZINE [Concomitant]
  5. ENOXAPARIN [Concomitant]
  6. FERROUS FUMARATE [Concomitant]
  7. FOLIC ACID [Concomitant]
  8. HALOPERIDOL [Concomitant]
  9. LANSOPRAZOL [Concomitant]
  10. NOVO NORDISK A/S HUMAN [Concomitant]
  11. PARACETAMOL [Concomitant]
  12. PREDNISOLONE [Concomitant]
  13. SERTRALINE [Concomitant]
  14. TERBUTALINE [Concomitant]
  15. TRIAMCINOLONE [Concomitant]

REACTIONS (3)
  - Renal failure acute [Fatal]
  - Somnolence [Unknown]
  - Nausea [Unknown]
